FAERS Safety Report 5502730-7 (Version None)
Quarter: 2007Q4

REPORT INFORMATION
  Report Type: 
  Country: None (occurrence: None)
  Receive Date: 20071031
  Receipt Date: 20071026
  Transmission Date: 20080405
  Serious: Yes (Death, Hospitalization, Other)
  Sender: FDA-Public Use
  Company Number: US-ELI_LILLY_AND_COMPANY-US200710006719

PATIENT
  Sex: Male

DRUGS (1)
  1. ZYPREXA [Suspect]
     Dates: start: 20031018

REACTIONS (3)
  - DEHYDRATION [None]
  - DIABETIC KETOACIDOSIS [None]
  - SEPSIS [None]
